FAERS Safety Report 12807236 (Version 1)
Quarter: 2016Q4

REPORT INFORMATION
  Report Type: Spontaneous
  Country: GB (occurrence: GB)
  Receive Date: 20161004
  Receipt Date: 20161004
  Transmission Date: 20170207
  Serious: Yes (Other)
  Sender: FDA-Public Use
  Company Number: GB-PFIZER INC-2016455358

PATIENT
  Age: 56 Year
  Sex: Female
  Weight: 79 kg

DRUGS (5)
  1. PREGABALIN. [Suspect]
     Active Substance: PREGABALIN
     Indication: ARTHRALGIA
     Dosage: 75 MG, 2X/DAY
     Route: 048
     Dates: start: 20150810, end: 20151006
  2. NAPROXEN. [Concomitant]
     Active Substance: NAPROXEN
  3. OMEPRAZOLE. [Concomitant]
     Active Substance: OMEPRAZOLE
  4. TRAZODONE [Concomitant]
     Active Substance: TRAZODONE HYDROCHLORIDE
  5. ZOMORPH [Concomitant]
     Active Substance: MORPHINE SULFATE

REACTIONS (3)
  - Clonus [Recovered/Resolved]
  - Product use issue [Unknown]
  - Facial spasm [Recovered/Resolved]

NARRATIVE: CASE EVENT DATE: 20150810
